FAERS Safety Report 4846725-5 (Version None)
Quarter: 2005Q4

REPORT INFORMATION
  Report Type: 
  Country: None (occurrence: None)
  Receive Date: 20051206
  Receipt Date: 20051202
  Transmission Date: 20060501
  Serious: Yes (Disabling)
  Sender: FDA-Public Use
  Company Number: GB-MERCK-0512GBR00014

PATIENT
  Age: 71 Year
  Sex: Male

DRUGS (14)
  1. ZOCOR [Suspect]
     Indication: HYPERCHOLESTEROLAEMIA
     Route: 048
     Dates: start: 20051023, end: 20051114
  2. CYCLOSPORINE [Concomitant]
     Route: 065
  3. AZATHIOPRINE [Concomitant]
     Route: 065
  4. PREDNISOLONE [Concomitant]
     Route: 065
  5. VALGANCICLOVIR HYDROCHLORIDE [Concomitant]
     Route: 065
  6. SULFAMETHOXAZOLE AND TRIMETHOPRIM [Concomitant]
     Route: 065
  7. FUROSEMIDE [Concomitant]
     Route: 065
  8. OMEPRAZOLE [Concomitant]
     Route: 065
  9. ISOSORBIDE MONONITRATE [Concomitant]
     Route: 065
  10. CLOPIDOGREL BISULFATE [Concomitant]
     Route: 065
  11. ASPIRIN [Concomitant]
     Route: 065
  12. ATENOLOL [Concomitant]
     Route: 065
  13. PERINDOPRIL [Concomitant]
     Route: 065
  14. AMOXICILLIN AND CLAVULANATE POTASSIUM [Concomitant]
     Route: 065

REACTIONS (1)
  - MYOSITIS [None]
